FAERS Safety Report 24939849 (Version 2)
Quarter: 2025Q4

REPORT INFORMATION
  Report Type: Spontaneous
  Country: US (occurrence: US)
  Receive Date: 20250207
  Receipt Date: 20251214
  Transmission Date: 20260117
  Serious: No
  Sender: CSL BEHRING
  Company Number: US-BEH-2025193770

PATIENT
  Age: 82 Year
  Sex: Female

DRUGS (3)
  1. HIZENTRA [Suspect]
     Active Substance: HUMAN IMMUNOGLOBULIN G
     Indication: Immunodeficiency common variable
     Dosage: 10 G (50ML)
     Route: 058
     Dates: start: 20240920
  2. HIZENTRA [Suspect]
     Active Substance: HUMAN IMMUNOGLOBULIN G
     Dosage: 12 G (10 G/ 50ML), (2G/10 ML), EVERY 10 DAYS
     Route: 058
     Dates: start: 20240920
  3. EPINEPHRINE [Concomitant]
     Active Substance: EPINEPHRINE
     Dosage: 0.3 MG, PEN (2=2)

REACTIONS (7)
  - Ill-defined disorder [Not Recovered/Not Resolved]
  - Drug level decreased [Not Recovered/Not Resolved]
  - Erythema [Unknown]
  - Peripheral swelling [Unknown]
  - Pain in extremity [Unknown]
  - Hypoaesthesia [Unknown]
  - Arthralgia [Unknown]
